FAERS Safety Report 24560619 (Version 1)
Quarter: 2024Q4

REPORT INFORMATION
  Report Type: Spontaneous
  Country: ES (occurrence: ES)
  Receive Date: 20241029
  Receipt Date: 20241029
  Transmission Date: 20250115
  Serious: Yes (Other)
  Sender: NOVARTIS
  Company Number: None

PATIENT
  Age: 62 Year
  Sex: Female

DRUGS (2)
  1. SIMULECT [Suspect]
     Active Substance: BASILIXIMAB
     Indication: Prophylaxis against graft versus host disease
     Dosage: UNK (20 MG POLVO Y DISOLVENTE PARA SOLUCION INYECTABLE O PARA PERFUSION , 1 VIAL + 1 AMPOLLA DE DISO
     Route: 048
     Dates: start: 20240926
  2. MYCOPHENOLATE SODIUM [Suspect]
     Active Substance: MYCOPHENOLATE SODIUM
     Indication: Prophylaxis against graft versus host disease
     Dosage: UNK (CEPTAVA 360 MG COMPRIMIDOS GASTRORRESISTENTES EFG 50 COMPRIMIDOS)
     Route: 048
     Dates: start: 20240926

REACTIONS (1)
  - Hyperamylasaemia [Recovering/Resolving]

NARRATIVE: CASE EVENT DATE: 20240926
